FAERS Safety Report 21015592 (Version 1)
Quarter: 2022Q2

REPORT INFORMATION
  Report Type: Spontaneous
  Country: DE (occurrence: DE)
  Receive Date: 20220628
  Receipt Date: 20220628
  Transmission Date: 20220721
  Serious: Yes (Hospitalization)
  Sender: FDA-Public Use
  Company Number: DE-PFIZER INC-202200069625

PATIENT
  Age: 7 Year
  Sex: Male

DRUGS (3)
  1. RAPAMUNE [Suspect]
     Active Substance: SIROLIMUS
     Indication: Renal transplant
     Dosage: 1 ML, DAILY
     Route: 048
  2. RAPAMUNE [Suspect]
     Active Substance: SIROLIMUS
     Dosage: 1.5 ML, 2X/DAY
     Dates: start: 20211211
  3. RAPAMUNE [Suspect]
     Active Substance: SIROLIMUS
     Dosage: 0.5 ML, 2X/DAY
     Dates: start: 202202, end: 202202

REACTIONS (6)
  - Infection [Unknown]
  - Urinary tract infection [Unknown]
  - Infection [Unknown]
  - C-reactive protein increased [Unknown]
  - Off label use [Unknown]
  - Off label use [Unknown]

NARRATIVE: CASE EVENT DATE: 20211223
